FAERS Safety Report 23939253 (Version 1)
Quarter: 2024Q2

REPORT INFORMATION
  Report Type: Spontaneous
  Country: FR (occurrence: FR)
  Receive Date: 20240605
  Receipt Date: 20240605
  Transmission Date: 20240716
  Serious: Yes (Hospitalization)
  Sender: FDA-Public Use
  Company Number: FR-ABBVIE-5776459

PATIENT
  Age: 82 Year
  Sex: Female

DRUGS (1)
  1. EPCORITAMAB [Suspect]
     Active Substance: EPCORITAMAB
     Indication: Diffuse large B-cell lymphoma refractory
     Dosage: 48 MG 48 MG, SOLUTION INJECTABLE, TOTAL
     Route: 058
     Dates: start: 20240312, end: 20240312

REACTIONS (2)
  - Hyperthermia [Recovered/Resolved]
  - Hypotension [Recovered/Resolved]

NARRATIVE: CASE EVENT DATE: 20240317
